FAERS Safety Report 7227313-2 (Version None)
Quarter: 2011Q1

REPORT INFORMATION
  Report Type: 
  Country: None (occurrence: None)
  Receive Date: 20110114
  Receipt Date: 20110104
  Transmission Date: 20110831
  Serious: Yes (Hospitalization)
  Sender: FDA-Public Use
  Company Number: B0693245A

PATIENT
  Age: 43 Year
  Sex: Female
  Weight: 75 kg

DRUGS (9)
  1. SUCCINYLCHOLINE CHLORIDE [Concomitant]
     Dosage: 120MG PER DAY
  2. VALSARTAN [Concomitant]
  3. FENTANYL [Concomitant]
     Dosage: 100MCG PER DAY
  4. PROPOFOL [Concomitant]
     Dosage: 150MG PER DAY
  5. DESFLURANE [Concomitant]
  6. LIDOCAINE HYDROCHLORIDE IN PLASTIC CONTAINER [Concomitant]
     Dosage: 100MG PER DAY
  7. DEXAMETHASONE [Concomitant]
     Dosage: 4MG PER DAY
  8. ONDANSETRON [Suspect]
     Indication: PROPHYLAXIS
     Route: 042
  9. UNKNOWN DRUG [Concomitant]

REACTIONS (5)
  - HEADACHE [None]
  - MALAISE [None]
  - ELECTROCARDIOGRAM QT PROLONGED [None]
  - VENTRICULAR TACHYCARDIA [None]
  - CORONARY ARTERY DISEASE [None]
